FAERS Safety Report 10165835 (Version 1)
Quarter: 2014Q2

REPORT INFORMATION
  Report Type: Spontaneous
  Country: US (occurrence: US)
  Receive Date: 20140510
  Receipt Date: 20140510
  Transmission Date: 20141212
  Serious: No
  Sender: FDA-Public Use
  Company Number: US-BRISTOL-MYERS SQUIBB COMPANY-19977388

PATIENT
  Sex: Female

DRUGS (4)
  1. BYDUREON [Suspect]
  2. JANUMET [Concomitant]
  3. GLIPIZIDE [Concomitant]
     Dosage: 1 DF = 2 TAB
  4. LISINOPRIL [Concomitant]

REACTIONS (2)
  - Injection site nodule [Unknown]
  - Injection site pain [Unknown]
